FAERS Safety Report 16296982 (Version 9)
Quarter: 2020Q2

REPORT INFORMATION
  Report Type: Spontaneous
  Country: BR (occurrence: BR)
  Receive Date: 20190510
  Receipt Date: 20200630
  Transmission Date: 20200713
  Serious: Yes (Hospitalization, Other)
  Sender: FDA-Public Use
  Company Number: BR-GLAXOSMITHKLINE-BR2019GSK060776

PATIENT
  Age: 44 Year
  Sex: Female
  Weight: 64 kg

DRUGS (2)
  1. NUCALA [Suspect]
     Active Substance: MEPOLIZUMAB
     Indication: EOSINOPHILIC GRANULOMATOSIS WITH POLYANGIITIS
     Dosage: 300 UNK
  2. NUCALA [Suspect]
     Active Substance: MEPOLIZUMAB
     Indication: ASTHMA
     Dosage: 100 MG, UNK
     Dates: start: 20190222

REACTIONS (28)
  - Asthmatic crisis [Not Recovered/Not Resolved]
  - Productive cough [Unknown]
  - Tachypnoea [Unknown]
  - Product availability issue [Unknown]
  - Pain [Unknown]
  - Walking aid user [Unknown]
  - Hospitalisation [Unknown]
  - Muscular weakness [Unknown]
  - Malaise [Unknown]
  - Bedridden [Unknown]
  - Paraesthesia [Unknown]
  - Fear of death [Unknown]
  - Asthma [Unknown]
  - Dyspnoea [Unknown]
  - Dysarthria [Unknown]
  - Dyskinesia [Unknown]
  - Rhinorrhoea [Unknown]
  - Breast injury [Unknown]
  - Suicide attempt [Unknown]
  - Pneumonia [Unknown]
  - Oxygen saturation decreased [Unknown]
  - Breast pain [Unknown]
  - Cough [Unknown]
  - Fatigue [Unknown]
  - Condition aggravated [Unknown]
  - Nausea [Unknown]
  - Inappropriate schedule of product administration [Unknown]
  - Product use issue [Unknown]

NARRATIVE: CASE EVENT DATE: 20190801
